FAERS Safety Report 8978906 (Version 3)
Quarter: 2013Q1

REPORT INFORMATION
  Report Type: Spontaneous
  Country: US (occurrence: US)
  Receive Date: 20121220
  Receipt Date: 20130104
  Transmission Date: 20140127
  Serious: Yes (Death, Hospitalization, Other)
  Sender: FDA-Public Use
  Company Number: US-BAXTER-2012BAX027909

PATIENT
  Age: 76 Year
  Sex: Male

DRUGS (1)
  1. DIANEAL LOW CALCIUM [Suspect]
     Indication: PERITONEAL DIALYSIS
     Route: 033
     Dates: end: 20121212

REACTIONS (6)
  - Fall [Fatal]
  - Rib fracture [Unknown]
  - Fall [Unknown]
  - Cardiac arrest [Unknown]
  - Chest pain [Unknown]
  - Vomiting [Unknown]
